FAERS Safety Report 18041508 (Version 3)
Quarter: 2020Q3

REPORT INFORMATION
  Report Type: Report from Study
  Country: BR (occurrence: BR)
  Receive Date: 20200720
  Receipt Date: 20200923
  Transmission Date: 20201103
  Serious: Yes (Other)
  Sender: FDA-Public Use
  Company Number: BR-BIOGEN-2020BI00898020

PATIENT
  Age: 32 Year
  Sex: Female

DRUGS (3)
  1. FLUOXETINE [Concomitant]
     Active Substance: FLUOXETINE HYDROCHLORIDE
     Indication: ANXIETY
     Route: 065
  2. TYSABRI [Suspect]
     Active Substance: NATALIZUMAB
     Dosage: INFUSED OVER 1 HOUR
     Route: 042
     Dates: end: 20200622
  3. TYSABRI [Suspect]
     Active Substance: NATALIZUMAB
     Indication: MULTIPLE SCLEROSIS
     Dosage: INFUSED OVER 1 HOUR
     Route: 042
     Dates: start: 20180201, end: 201905

REACTIONS (6)
  - Hemiplegia [Unknown]
  - Urinary incontinence [Not Recovered/Not Resolved]
  - Vitamin D deficiency [Recovered/Resolved]
  - Blindness [Unknown]
  - Multiple sclerosis relapse [Unknown]
  - Bone pain [Not Recovered/Not Resolved]

NARRATIVE: CASE EVENT DATE: 201912
